FAERS Safety Report 20977380 (Version 3)
Quarter: 2022Q4

REPORT INFORMATION
  Report Type: Report from Study
  Country: KR (occurrence: KR)
  Receive Date: 20220617
  Receipt Date: 20221213
  Transmission Date: 20230113
  Serious: Yes (Death, Hospitalization)
  Sender: FDA-Public Use
  Company Number: KR-JNJFOC-20220450538

PATIENT
  Age: 76 Year
  Sex: Female
  Weight: 50.2 kg

DRUGS (7)
  1. AMIVANTAMAB [Suspect]
     Active Substance: AMIVANTAMAB
     Indication: Non-small cell lung cancer metastatic
     Route: 042
     Dates: start: 20220328, end: 20220502
  2. SIMVASTATIN [Concomitant]
     Active Substance: SIMVASTATIN
     Indication: Hyperlipidaemia
     Route: 048
     Dates: start: 20140101
  3. EBASTINE\PSEUDOEPHEDRINE HYDROCHLORIDE [Concomitant]
     Active Substance: EBASTINE\PSEUDOEPHEDRINE HYDROCHLORIDE
     Indication: Pruritus
     Route: 048
     Dates: start: 20220411, end: 20220417
  4. TWOLION [Concomitant]
     Indication: Pruritus
     Route: 048
     Dates: start: 20220411, end: 20220417
  5. SINIL-M [Concomitant]
     Indication: Constipation
     Route: 048
     Dates: start: 20220411, end: 20220417
  6. LACTULOSE [Concomitant]
     Active Substance: LACTULOSE
     Indication: Constipation
     Route: 048
     Dates: start: 20220418, end: 20220423
  7. WELLCON [Concomitant]
     Indication: Constipation
     Route: 048
     Dates: start: 20220418, end: 20220423

REACTIONS (2)
  - Pneumonitis [Fatal]
  - Diarrhoea [Not Recovered/Not Resolved]

NARRATIVE: CASE EVENT DATE: 20220425
